FAERS Safety Report 20151894 (Version 1)
Quarter: 2021Q4

REPORT INFORMATION
  Report Type: Spontaneous
  Country: US (occurrence: None)
  Receive Date: 20211204
  Receipt Date: 20211204
  Transmission Date: 20220303
  Serious: Yes (Disabling)
  Sender: FDA-Public Use
  Company Number: None

PATIENT
  Age: 45 Year
  Sex: Female
  Weight: 85.5 kg

DRUGS (6)
  1. AIMOVIG [Suspect]
     Active Substance: ERENUMAB-AOOE
     Indication: Migraine
     Dosage: OTHER QUANTITY : 1 INJECTION(S);?OTHER FREQUENCY : ONCE A MONTH;?
     Route: 030
     Dates: start: 20211201
  2. MIDODRINE [Concomitant]
     Active Substance: MIDODRINE
  3. DOXEPIN [Concomitant]
     Active Substance: DOXEPIN
  4. Smarty pants vitamins [Concomitant]
  5. FISH OIL [Concomitant]
     Active Substance: FISH OIL
  6. VITAMIN D [Concomitant]
     Active Substance: VITAMIN D NOS

REACTIONS (6)
  - Constipation [None]
  - Blood pressure increased [None]
  - Migraine [None]
  - Fatigue [None]
  - Myalgia [None]
  - Head discomfort [None]

NARRATIVE: CASE EVENT DATE: 20211203
